FAERS Safety Report 9213994 (Version 1)
Quarter: 2013Q2

REPORT INFORMATION
  Report Type: Spontaneous
  Country: US (occurrence: None)
  Receive Date: 20130404
  Receipt Date: 20130404
  Transmission Date: 20140414
  Serious: Yes (Hospitalization)
  Sender: FDA-Public Use
  Company Number: None

PATIENT
  Age: 66 Year
  Sex: Female
  Weight: 88.6 kg

DRUGS (21)
  1. CARBOPLATIN [Suspect]
  2. ALEVE [Concomitant]
  3. AMBIEN [Concomitant]
  4. AMITZA [Concomitant]
  5. ASPIRIN [Concomitant]
  6. CHLONAZEPAM [Concomitant]
  7. COD LIVER OIL [Concomitant]
  8. FISH OIL [Concomitant]
  9. FLAX SEED OIL [Concomitant]
  10. HCTC [Concomitant]
  11. LEXPRO [Concomitant]
  12. LISINOPRIL [Concomitant]
  13. LORTAB [Concomitant]
  14. METFORMIN HCL [Concomitant]
  15. MIRALAX [Concomitant]
  16. MIRAPEX [Concomitant]
  17. MULTIVITAMIN [Concomitant]
  18. PROTONIX [Concomitant]
  19. VITAMIN C [Concomitant]
  20. VITAMIN E [Concomitant]
  21. ZETIA [Concomitant]

REACTIONS (1)
  - Neutrophil count decreased [None]
